FAERS Safety Report 12356819 (Version 1)
Quarter: 2016Q2

REPORT INFORMATION
  Report Type: Spontaneous
  Country: US (occurrence: US)
  Receive Date: 20160511
  Receipt Date: 20160511
  Transmission Date: 20160815
  Serious: No
  Sender: FDA-Public Use
  Company Number: US-PFIZER INC-2016218415

PATIENT
  Age: 68 Year
  Sex: Female
  Weight: 48 kg

DRUGS (3)
  1. RESTASIS [Suspect]
     Active Substance: CYCLOSPORINE
     Indication: DRY EYE
     Dosage: 0.4 ML, 2X/DAY DIRECTLY INTO THE EYE
     Dates: start: 201603, end: 20160413
  2. LYRICA [Suspect]
     Active Substance: PREGABALIN
     Dosage: 75 MG, 2X/DAY
     Dates: start: 20160331, end: 20160414
  3. LYRICA [Suspect]
     Active Substance: PREGABALIN
     Indication: NEURALGIA
     Dosage: 50 MG, 2X/DAY
     Dates: end: 20160330

REACTIONS (5)
  - Intentional product misuse [Unknown]
  - Dry mouth [Not Recovered/Not Resolved]
  - Contusion [Not Recovered/Not Resolved]
  - Oedema peripheral [Recovering/Resolving]
  - Vision blurred [Not Recovered/Not Resolved]
